FAERS Safety Report 9695988 (Version 1)
Quarter: 2013Q4

REPORT INFORMATION
  Report Type: Spontaneous
  Country: US (occurrence: US)
  Receive Date: 20131119
  Receipt Date: 20131119
  Transmission Date: 20140711
  Serious: No
  Sender: FDA-Public Use
  Company Number: US-BAYER-2013-140896

PATIENT
  Age: 65 Year
  Sex: Female
  Weight: 99.77 kg

DRUGS (2)
  1. ALEVE TABLET [Suspect]
     Indication: BACK PAIN
     Dosage: 2 DF, ONCE
     Route: 048
     Dates: start: 20131115, end: 20131115
  2. ALEVE CAPLET [Suspect]
     Indication: BACK PAIN
     Route: 048

REACTIONS (2)
  - Back pain [None]
  - Drug ineffective [None]
